FAERS Safety Report 4657641-6 (Version None)
Quarter: 2005Q2

REPORT INFORMATION
  Report Type: 
  Country: None (occurrence: None)
  Receive Date: 20050510
  Receipt Date: 20050504
  Transmission Date: 20051028
  Serious: Yes (Other)
  Sender: FDA-Public Use
  Company Number: 200514038GDDC

PATIENT
  Age: 33 Year
  Sex: Female

DRUGS (5)
  1. LANTUS [Suspect]
     Indication: DIABETES MELLITUS
     Dosage: DOSE UNIT: UNITS
     Route: 058
     Dates: start: 20050413, end: 20050502
  2. HUMALOG [Suspect]
     Indication: DIABETES MELLITUS
     Dosage: FREQUENCY: BEFORE MEALS; DOSE UNIT: UNITS
     Route: 058
  3. ELTROXIN [Concomitant]
     Indication: HYPOTHYROIDISM
     Route: 048
  4. NOVOLIN GE NPH [Concomitant]
     Indication: DIABETES MELLITUS
     Dosage: DOSE UNIT: UNITS
     Route: 058
  5. BIRTH CONTROL PILL [Concomitant]
     Route: 048

REACTIONS (2)
  - DRUG INEFFECTIVE [None]
  - HYPERGLYCAEMIA [None]
